FAERS Safety Report 7622820-2 (Version None)
Quarter: 2011Q3

REPORT INFORMATION
  Report Type: 
  Country: None (occurrence: None)
  Receive Date: 20110720
  Receipt Date: 20110707
  Transmission Date: 20111222
  Serious: Yes (Other)
  Sender: FDA-Public Use
  Company Number: DE-UCBSA-036753

PATIENT
  Sex: Female

DRUGS (2)
  1. LEVETIRACETAM [Suspect]
     Dates: start: 20110101
  2. KEPPRA [Suspect]
     Dates: end: 20110101

REACTIONS (2)
  - URTICARIA [None]
  - BLISTER [None]
